FAERS Safety Report 8622905-8 (Version None)
Quarter: 2012Q3

REPORT INFORMATION
  Report Type: 
  Country: None (occurrence: None)
  Receive Date: 20120827
  Receipt Date: 20120820
  Transmission Date: 20120928
  Serious: Yes (Hospitalization, Other)
  Sender: FDA-Public Use
  Company Number: PHHY2012CA054227

PATIENT
  Sex: Female

DRUGS (4)
  1. CLODRONATE DISODIUM [Concomitant]
  2. COUMADIN [Concomitant]
  3. EXEMESTANE [Concomitant]
  4. AFINITOR [Suspect]
     Indication: BREAST CANCER METASTATIC
     Dosage: 10 MG, DAILY
     Route: 048

REACTIONS (7)
  - GOUT [None]
  - DECREASED APPETITE [None]
  - ARTHRITIS [None]
  - SYNOVIAL FLUID CRYSTAL PRESENT [None]
  - DEHYDRATION [None]
  - STOMATITIS [None]
  - HYPONATRAEMIA [None]
